FAERS Safety Report 4303929-8 (Version None)
Quarter: 2004Q1

REPORT INFORMATION
  Report Type: 
  Country: None (occurrence: None)
  Receive Date: 20040223
  Receipt Date: 20031124
  Transmission Date: 20041129
  Serious: No
  Sender: FDA-Public Use
  Company Number: PHEH2003US10762

PATIENT
  Age: 64 Year
  Sex: Female

DRUGS (10)
  1. ZELNORM (TEGASEROD) TABLET [Suspect]
     Indication: IRRITABLE BOWEL SYNDROME
     Dosage: 6 MG, BID, ORAL
     Route: 048
     Dates: start: 20031017
  2. LIPITOR [Concomitant]
  3. UNIVASC [Concomitant]
  4. HYDROCHLOROTHIAZIDE [Concomitant]
  5. INDERAL [Concomitant]
  6. LIBRAX [Concomitant]
  7. CLORAZEPATE (CLORAZEPATE DIPOTASSIUM) [Concomitant]
  8. LOMOTIL (DIPHENOXYLATE HYDROCHLORIDE) [Concomitant]
  9. ASPIRIN [Concomitant]
  10. MICRO-K [Concomitant]

REACTIONS (8)
  - ABDOMINAL PAIN UPPER [None]
  - ABNORMAL FAECES [None]
  - BLOOD CREATININE INCREASED [None]
  - BOWEL SOUNDS ABNORMAL [None]
  - DERMATITIS EXFOLIATIVE [None]
  - DIARRHOEA [None]
  - IRRITABLE BOWEL SYNDROME [None]
  - VOMITING [None]
